FAERS Safety Report 8820744 (Version 1)
Quarter: 2012Q4

REPORT INFORMATION
  Report Type: 
  Country: DE (occurrence: DE)
  Receive Date: 20121002
  Receipt Date: 20121002
  Transmission Date: 20130627
  Serious: Yes (Hospitalization)
  Sender: FDA-Public Use
  Company Number: DE-PFIZER INC-2012238946

PATIENT
  Age: 68 Year
  Sex: Male
  Weight: 68 kg

DRUGS (38)
  1. GENOTROPIN [Suspect]
     Dosage: 0.3 mg, 7/wk
     Route: 058
     Dates: start: 20030826
  2. ANGIONORM [Concomitant]
     Dosage: UNK
     Dates: start: 19951201
  3. VITAMIN E [Concomitant]
     Indication: HYPOVITAMINOSIS
     Dosage: UNK
     Dates: start: 19960206
  4. GELOMYRTOL [Concomitant]
     Indication: BRONCHITIS
     Dosage: UNK
     Dates: start: 19960227
  5. GELOMYRTOL [Concomitant]
     Indication: BRONCHIOLITIS
  6. DOXY-WOLFF [Concomitant]
     Indication: RESPIRATORY DISORDER
     Dosage: UNK
     Dates: start: 19960304
  7. LOPEDIUM [Concomitant]
     Indication: GASTROENTERITIS
     Dosage: UNK
     Dates: start: 19960304
  8. LOPEDIUM [Concomitant]
     Indication: COLITIS
  9. NOVADRAL ^DIWAG^ [Concomitant]
     Indication: HYPOTENSION
     Dosage: UNK
     Dates: start: 19960306
  10. NAC ^RATIOPHARM^ [Concomitant]
     Indication: RESPIRATORY DISORDER
     Dosage: UNK
     Dates: start: 19960307
  11. ECHINACIN [Concomitant]
     Dosage: UNK
     Dates: start: 19960309
  12. CORTISONE ^CIBA-GEIGY^ [Concomitant]
     Indication: ACUTE STRESS DISORDER
     Dosage: UNK
     Dates: start: 19960410
  13. FLUDROCORTISONE [Concomitant]
     Indication: HYPERALDOSTERONISM
     Dosage: UNK
     Dates: start: 19960701
  14. VENOBIASE [Concomitant]
     Indication: OEDEMA
     Dosage: UNK
     Dates: start: 19960801
  15. VENOBIASE [Concomitant]
     Indication: OEDEMA PERIPHERAL
  16. RANITIDINE [Concomitant]
     Indication: DYSPEPSIA
     Dosage: UNK
     Dates: start: 20000715
  17. DILTIAZEM [Concomitant]
     Indication: RAYNAUD^S PHENOMENON
     Dosage: UNK
     Dates: start: 20000808
  18. SALBUTAMOL [Concomitant]
     Dosage: UNK
     Dates: start: 20000831
  19. CELEBREX [Concomitant]
     Indication: NEURALGIA
     Dosage: UNK
     Dates: start: 20000907
  20. CELEBREX [Concomitant]
     Indication: NEURITIS
  21. ATORVASTATIN [Concomitant]
     Indication: HYPERLIPIDAEMIA
     Dosage: UNK
     Dates: start: 20001108
  22. DICLOFENAC [Concomitant]
     Indication: NEURALGIA
     Dosage: UNK
     Dates: start: 20001215
  23. DICLOFENAC [Concomitant]
     Indication: NEURITIS
  24. URION ^BYK GULDEN^ [Concomitant]
     Dosage: UNK
     Dates: start: 20010103
  25. RIOPAN [Concomitant]
     Indication: GASTRIC DISORDER
     Dosage: UNK
     Dates: start: 20010715
  26. PHLEBODRIL CAPSULE [Concomitant]
     Indication: OEDEMA
     Dosage: UNK
     Dates: start: 20010717
  27. PHLEBODRIL CAPSULE [Concomitant]
     Indication: OEDEMA PERIPHERAL
  28. METFORMIN HYDROCHLORIDE [Concomitant]
     Indication: DIABETES MELLITUS
     Dosage: UNK
     Dates: start: 20030121
  29. NITRO-SPRAY [Concomitant]
     Indication: CARDIAC DISORDER
     Dosage: UNK
     Dates: start: 20030121
  30. NOVAMINSULFON ^BRAUN^ [Concomitant]
     Indication: CARDIAC DISORDER
     Dosage: UNK
     Dates: start: 20030121
  31. VERABETA [Concomitant]
     Dosage: UNK
     Dates: start: 20030121
  32. OMEPRAZOL ^STADA^ [Concomitant]
     Indication: GASTRITIS
     Dosage: UNK
     Dates: start: 20040217
  33. OMEPRAZOL ^STADA^ [Concomitant]
     Indication: DUODENITIS
  34. TESTOSTERONE [Concomitant]
     Indication: BLOOD LUTEINISING HORMONE DECREASED
     Dosage: UNK
     Dates: start: 19900615
  35. TESTOSTERONE [Concomitant]
     Indication: BLOOD FOLLICLE STIMULATING HORMONE DECREASED
  36. TESTOSTERONE [Concomitant]
     Indication: PRIMARY HYPOGONADISM
  37. LEVOTHYROXINE [Concomitant]
     Indication: BLOOD THYROID STIMULATING HORMONE DECREASED
     Dosage: UNK
     Dates: start: 19900615
  38. LEVOTHYROXINE [Concomitant]
     Indication: PRIMARY HYPOTHYROIDISM

REACTIONS (3)
  - Headache [Unknown]
  - Tinnitus [Unknown]
  - Deafness [Unknown]
